FAERS Safety Report 16535985 (Version 4)
Quarter: 2019Q3

REPORT INFORMATION
  Report Type: Report from Study
  Country: FR (occurrence: FR)
  Receive Date: 20190705
  Receipt Date: 20190926
  Transmission Date: 20191004
  Serious: Yes (Hospitalization, Other)
  Sender: FDA-Public Use
  Company Number: FR-AMGEN-FRANI2019107904

PATIENT
  Age: 54 Year
  Sex: Female

DRUGS (3)
  1. ERENUMAB [Suspect]
     Active Substance: ERENUMAB
     Indication: MIGRAINE
     Dosage: 140 MILLIGRAM, QMO
     Route: 058
     Dates: start: 20190614
  2. ERENUMAB [Suspect]
     Active Substance: ERENUMAB
     Dosage: 70 MILLIGRAM, (2DF ONCE)
     Route: 058
     Dates: start: 20190614, end: 20190614
  3. ELETRIPTAN. [Concomitant]
     Active Substance: ELETRIPTAN
     Indication: MIGRAINE
     Dosage: 40 OT, QD
     Route: 065
     Dates: start: 20190613, end: 20190613

REACTIONS (11)
  - Chest discomfort [Not Recovered/Not Resolved]
  - Anxiety [Recovering/Resolving]
  - Headache [Unknown]
  - Chest pain [Not Recovered/Not Resolved]
  - C-reactive protein increased [Unknown]
  - Lymphopenia [Unknown]
  - Eosinopenia [Unknown]
  - Migraine [Unknown]
  - Abdominal pain [Not Recovered/Not Resolved]
  - Suicidal ideation [Recovered/Resolved]
  - Vomiting [Not Recovered/Not Resolved]

NARRATIVE: CASE EVENT DATE: 20190614
